FAERS Safety Report 7554790-X (Version None)
Quarter: 2011Q2

REPORT INFORMATION
  Report Type: 
  Country: None (occurrence: None)
  Receive Date: 20110617
  Receipt Date: 20110615
  Transmission Date: 20111010
  Serious: Yes (Death, Hospitalization, Other)
  Sender: FDA-Public Use
  Company Number: FR-BRISTOL-MYERS SQUIBB COMPANY-15737034

PATIENT
  Age: 53 Year
  Sex: Male

DRUGS (3)
  1. CETUXIMAB [Suspect]
     Indication: HEAD AND NECK CANCER
     Dosage: 748-ONCE, 452 MG 1 IN 1 WK
     Route: 042
     Dates: start: 20100224, end: 20100412
  2. CARBOPLATIN [Suspect]
     Indication: HEAD AND NECK CANCER
     Route: 042
     Dates: start: 20100301, end: 20100415
  3. FLUOROURACIL [Suspect]
     Indication: HEAD AND NECK CANCER
     Dosage: 600MG/M2 FIRST 4 DAYS OF 21 DAY CYCLE
     Route: 042
     Dates: start: 20100301, end: 20100415

REACTIONS (5)
  - DERMATITIS [None]
  - NEOPLASM PROGRESSION [None]
  - MUCOSAL INFLAMMATION [None]
  - BONE MARROW FAILURE [None]
  - GENERAL PHYSICAL HEALTH DETERIORATION [None]
